FAERS Safety Report 9485753 (Version 1)
Quarter: 2013Q3

REPORT INFORMATION
  Report Type: Spontaneous
  Country: US (occurrence: None)
  Receive Date: 20130821
  Receipt Date: 20130821
  Transmission Date: 20140515
  Serious: Yes (Other)
  Sender: FDA-Public Use
  Company Number: ACO_37191_2013

PATIENT
  Age: 64 Year
  Sex: Male
  Weight: 77.1 kg

DRUGS (21)
  1. AMPYRA (DALFAMPRIDINE) TABLET, 10 MG [Suspect]
     Indication: GAIT DISTURBANCE
     Route: 048
     Dates: start: 20130528, end: 20130630
  2. AMPYRA (DALFAMPRIDINE) TABLET, 10 MG [Suspect]
     Indication: MULTIPLE SCLEROSIS
     Route: 048
     Dates: start: 20130528, end: 20130630
  3. AZELASTINE HYDROCHLORIDE *AZELASTINE HYDROCHLORIDE) NSAL DROP (NASAL SPRAY TOO) [Concomitant]
  4. TRAMADOL (TRAMADOL HYDROCHLORIDE) [Concomitant]
  5. BACLOFEN (BACLOFEN) [Concomitant]
  6. LSINPRIL//HYDROCHLORTHIAZIDE (HYDROCHLOROTHIAZIDE, LISINOPRIL) [Concomitant]
  7. SYNTHROID (LEVOTHYROXINE SODIUM) [Concomitant]
  8. SYNTHROID (LEVOTHYROXINE SODIUM) [Concomitant]
  9. CITALOPRAM [Concomitant]
  10. AVODART (DUTASTERIDE) [Concomitant]
  11. AMITRIPTYLINE HCL (AMITRIPTYLINE HYDROCHLORIDE) [Concomitant]
  12. HYDROXYUREA (HYDROXYCARBOMIDE) [Concomitant]
  13. OXYBUYTYNIN HYDROCHLORIDE (OXYBUTYNIN HYDROCHLORIDE) [Concomitant]
  14. ALFUZOSIN HCL (ALFUZOSIN HYDROCHLORIDE) [Concomitant]
  15. CLONIDINE (CLONIDINE) PATCH [Concomitant]
  16. HUMALOG (INSULIN LISPRO) [Concomitant]
  17. HUMULIN N (INSULIN HUAM INJECTION, ISOPHANE) [Concomitant]
  18. LANTUS (INSULIN GLARGINE) [Concomitant]
  19. SIMVASTATIN (SIMVASTATIN) [Concomitant]
  20. ASPIRIN (ACETYLSALICYLIC ACID) [Concomitant]
  21. CENTRUM (ASCORBIC ACID, BIOTIN, CALCIUM PANTOTHENATE, CYANOCOBALAMIN, ERGOCALCIFEROL, IRON, NICOTINAMIDE, PYRIDOXINE HYDROCHLORIDE, RETINOL, RIBOFLAVIN, THIAMINE HYDROCHLORIDE, TOCOPHERYL ACETATE) [Concomitant]

REACTIONS (16)
  - Full blood count decreased [None]
  - Visual acuity reduced [None]
  - Vision blurred [None]
  - Vomiting [None]
  - Fatigue [None]
  - Musculoskeletal pain [None]
  - Apathy [None]
  - Decreased appetite [None]
  - Weight decreased [None]
  - Diplopia [None]
  - Tremor [None]
  - Back pain [None]
  - Dizziness [None]
  - Nausea [None]
  - Balance disorder [None]
  - Drug ineffective [None]
